FAERS Safety Report 10449395 (Version 1)
Quarter: 2014Q3

REPORT INFORMATION
  Report Type: Spontaneous
  Country: US (occurrence: None)
  Receive Date: 20140911
  Receipt Date: 20140911
  Transmission Date: 20150326
  Serious: Yes (Hospitalization)
  Sender: FDA-Public Use
  Company Number: None

PATIENT
  Age: 80 Year
  Sex: Female
  Weight: 68.95 kg

DRUGS (20)
  1. ORENCIA [Suspect]
     Active Substance: ABATACEPT
     Indication: RHEUMATOID ARTHRITIS
     Route: 042
     Dates: start: 20140806, end: 20140806
  2. METHOTREXATE [Concomitant]
     Active Substance: METHOTREXATE
  3. LOSARTAN [Concomitant]
     Active Substance: LOSARTAN
  4. PREDNISONE. [Concomitant]
     Active Substance: PREDNISONE
  5. TYLENOL [Concomitant]
     Active Substance: ACETAMINOPHEN
  6. CALCIUM CARBONATE. [Concomitant]
     Active Substance: CALCIUM CARBONATE
  7. HYZAAR [Concomitant]
     Active Substance: HYDROCHLOROTHIAZIDE\LOSARTAN POTASSIUM
  8. HYDROCHLOROTHIAZDE [Concomitant]
  9. ASPIRIN. [Concomitant]
     Active Substance: ASPIRIN
  10. ARTIFICIAL TEARS [Concomitant]
     Active Substance: GLYCERIN\HYPROMELLOSES\POLYETHYLENE GLYCOL 400
  11. VITAMIN C [Concomitant]
     Active Substance: ASCORBIC ACID
  12. GLIMEPIRIDE. [Concomitant]
     Active Substance: GLIMEPIRIDE
  13. FOLIC ACID. [Concomitant]
     Active Substance: FOLIC ACID
  14. TRAMADOL [Concomitant]
     Active Substance: TRAMADOL
  15. CALCITROL [Concomitant]
     Active Substance: CALCITRIOL
  16. MULTIVITAMIN [Concomitant]
     Active Substance: VITAMINS
  17. HYDROXYCHLOROQUINE [Concomitant]
     Active Substance: HYDROXYCHLOROQUINE
  18. METFORMIN [Concomitant]
     Active Substance: METFORMIN HYDROCHLORIDE
  19. METOPROLOL [Concomitant]
     Active Substance: METOPROLOL
  20. VITAMIN E [Concomitant]
     Active Substance: .ALPHA.-TOCOPHEROL

REACTIONS (3)
  - Sepsis [None]
  - Infection in an immunocompromised host [None]
  - Histoplasmosis disseminated [None]

NARRATIVE: CASE EVENT DATE: 20140905
